FAERS Safety Report 7657530-9 (Version None)
Quarter: 2011Q3

REPORT INFORMATION
  Report Type: 
  Country: None (occurrence: None)
  Receive Date: 20110804
  Receipt Date: 20110727
  Transmission Date: 20111222
  Serious: Yes (Other)
  Sender: FDA-Public Use
  Company Number: US-US-EMD SERONO, INC.-7069399

PATIENT
  Sex: Female
  Weight: 109 kg

DRUGS (3)
  1. NUVARING [Concomitant]
  2. REBIF [Suspect]
     Indication: MULTIPLE SCLEROSIS
     Route: 058
     Dates: start: 20110119
  3. ALBUTEROL SULFATE AUTOHALER [Concomitant]
     Indication: ASTHMA

REACTIONS (2)
  - CHOLECYSTITIS INFECTIVE [None]
  - HYPOTENSION [None]
